FAERS Safety Report 7687238-5 (Version None)
Quarter: 2011Q3

REPORT INFORMATION
  Report Type: 
  Country: None (occurrence: None)
  Receive Date: 20110816
  Receipt Date: 20110803
  Transmission Date: 20111222
  Serious: Yes (Hospitalization)
  Sender: FDA-Public Use
  Company Number: PT-MYLANLABS-2011S1016088

PATIENT
  Age: 65 Year
  Sex: Female

DRUGS (2)
  1. CIPROFLOXACIN [Suspect]
     Indication: SKIN ULCER
     Dosage: DOSAGE NOT STATED
     Route: 065
  2. CIPROFLOXACIN [Suspect]
     Dosage: TOOK ONE PILL (DOSAGE NOT STATED)
     Route: 048

REACTIONS (2)
  - RASH PUSTULAR [None]
  - PUSTULAR PSORIASIS [None]
